FAERS Safety Report 23216718 (Version 1)
Quarter: 2023Q4

REPORT INFORMATION
  Report Type: Other
  Country: JP (occurrence: JP)
  Receive Date: 20231122
  Receipt Date: 20231122
  Transmission Date: 20240110
  Serious: Yes (Hospitalization, Other)
  Sender: FDA-Public Use
  Company Number: JP-CHUGAI-2023038533

PATIENT
  Age: 55 Year
  Sex: Female
  Weight: 38 kg

DRUGS (4)
  1. ACTEMRA [Suspect]
     Active Substance: TOCILIZUMAB
     Indication: Rheumatoid arthritis
     Dosage: 162 MILLIGRAM, ONCE/2WEEKS
     Route: 058
     Dates: start: 20171006, end: 20210613
  2. AZULFIDINE EN-TABS [Concomitant]
     Active Substance: SULFASALAZINE
     Indication: Rheumatoid arthritis
     Dates: start: 20170209
  3. IGURATIMOD [Concomitant]
     Active Substance: IGURATIMOD
     Indication: Rheumatoid arthritis
     Dosage: 25 MILLIGRAM, QD
     Dates: start: 20170912, end: 20180305
  4. IGURATIMOD [Concomitant]
     Active Substance: IGURATIMOD
     Dosage: 25 MILLIGRAM, BID
     Dates: start: 20180306

REACTIONS (5)
  - Focal peritonitis [Recovered/Resolved]
  - Large intestine perforation [Recovered/Resolved]
  - Abscess [Recovered/Resolved]
  - Hernia [Unknown]
  - Gastric polyps [Unknown]

NARRATIVE: CASE EVENT DATE: 20210619
